FAERS Safety Report 8605588-2 (Version None)
Quarter: 2012Q3

REPORT INFORMATION
  Report Type: 
  Country: None (occurrence: None)
  Receive Date: 20120820
  Receipt Date: 20120810
  Transmission Date: 20120928
  Serious: Yes (Other)
  Sender: FDA-Public Use
  Company Number: US-ASTRAZENECA-2011SE11587

PATIENT
  Age: 67 Year
  Sex: Female

DRUGS (4)
  1. ARIMIDEX [Suspect]
     Route: 048
  2. PULMICORT FLEXHALER [Suspect]
     Route: 055
  3. SYMBICORT [Suspect]
     Route: 055
  4. NEXIUM [Suspect]
     Route: 048

REACTIONS (2)
  - LARYNGITIS [None]
  - NEOPLASM MALIGNANT [None]
